FAERS Safety Report 4839004-3 (Version None)
Quarter: 2005Q4

REPORT INFORMATION
  Report Type: 
  Country: None (occurrence: None)
  Receive Date: 20051024
  Receipt Date: 20050829
  Transmission Date: 20060501
  Serious: No
  Sender: FDA-Public Use
  Company Number: 2005-BP-15123BP

PATIENT
  Age: 55 Year
  Sex: Male
  Weight: 61.23 kg

DRUGS (8)
  1. APTIVUS [Suspect]
     Indication: HIV INFECTION
     Dosage: 1000/400 MG (SEE TEXT, TPV/R 250/100 MG, 2 CAPSULES BID) PO
     Route: 048
     Dates: start: 20050816, end: 20050821
  2. METHADONE [Concomitant]
  3. VIREAD [Concomitant]
  4. VIDEX EC [Concomitant]
  5. NEURONTIN [Concomitant]
  6. GLUCOVANCE [Concomitant]
  7. AVANDIA [Concomitant]
  8. DIFLUCAN (FLUCONAZOLE) [Concomitant]

REACTIONS (3)
  - DIZZINESS [None]
  - FALL [None]
  - SOMNOLENCE [None]
